FAERS Safety Report 10467768 (Version 4)
Quarter: 2014Q4

REPORT INFORMATION
  Report Type: Spontaneous
  Country: JP (occurrence: JP)
  Receive Date: 20140922
  Receipt Date: 20141111
  Transmission Date: 20150528
  Serious: Yes (Death, Life-Threatening, Hospitalization, Other)
  Sender: FDA-Public Use
  Company Number: JP-B.I. PHARMACEUTICALS,INC./RIDGEFIELD-2014-BI-37091NB

PATIENT
  Age: 44 Year
  Sex: Male
  Weight: 54.5 kg

DRUGS (16)
  1. GILOTRIF [Suspect]
     Active Substance: AFATINIB
     Indication: LUNG ADENOCARCINOMA
     Dosage: 30 MG
     Route: 048
     Dates: start: 20140520, end: 20140805
  2. OXINORM [Concomitant]
     Active Substance: OXYCODONE HYDROCHLORIDE
     Indication: CANCER PAIN
     Route: 048
     Dates: start: 20140627, end: 20140629
  3. LOPERAMIDE HYDROCHLORIDE. [Concomitant]
     Active Substance: LOPERAMIDE HYDROCHLORIDE
     Indication: PRODUCT USED FOR UNKNOWN INDICATION
     Route: 065
  4. RIVOTRIL [Concomitant]
     Active Substance: CLONAZEPAM
     Indication: CONVULSION PROPHYLAXIS
     Dosage: 0.5 MG
     Route: 048
     Dates: start: 20140604, end: 20140606
  5. DIAMOX SEQUELS [Concomitant]
     Active Substance: ACETAZOLAMIDE
     Indication: METASTASES TO MENINGES
     Dosage: 250 MG
     Route: 048
     Dates: start: 20140630
  6. FENTOS [Concomitant]
     Active Substance: FENTANYL
     Indication: CANCER PAIN
     Dosage: 1 MG
     Route: 062
     Dates: start: 20140516
  7. FAMOTIDINE OD [Concomitant]
     Indication: PROPHYLAXIS
     Dosage: 40 MG
     Route: 048
     Dates: start: 20140507
  8. ACUATIM [Concomitant]
     Active Substance: NADIFLOXACIN
     Indication: PRODUCT USED FOR UNKNOWN INDICATION
     Route: 065
  9. GLYCENON [Concomitant]
     Indication: METASTASES TO MENINGES
     Dosage: 400 ML
     Route: 042
     Dates: start: 20140626
  10. RINDERON V [Concomitant]
     Active Substance: BETAMETHASONE VALERATE
     Indication: DECREASED APPETITE
     Dosage: 2 MG
     Route: 048
     Dates: start: 20140430
  11. GABALON [Concomitant]
     Active Substance: BACLOFEN
     Indication: PRODUCT USED FOR UNKNOWN INDICATION
     Route: 065
  12. NIZORAL [Concomitant]
     Active Substance: KETOCONAZOLE
     Indication: PRODUCT USED FOR UNKNOWN INDICATION
     Route: 065
  13. URSO [Concomitant]
     Active Substance: URSODIOL
     Indication: LIVER DISORDER
     Route: 048
     Dates: start: 20140408
  14. OPSO [Concomitant]
     Active Substance: MORPHINE HYDROCHLORIDE
     Indication: CANCER PAIN
     Route: 048
     Dates: start: 20140630
  15. BESOFTEN [Concomitant]
     Active Substance: SODIUM ALGINATE
     Indication: PRODUCT USED FOR UNKNOWN INDICATION
     Route: 065
  16. PHENOBAL [Concomitant]
     Active Substance: PHENOBARBITAL
     Indication: CONVULSION PROPHYLAXIS
     Dosage: 100 MG
     Route: 030
     Dates: start: 20140628

REACTIONS (10)
  - Interstitial lung disease [Unknown]
  - Malignant neoplasm progression [Fatal]
  - Cancer pain [Unknown]
  - Haemoptysis [Unknown]
  - Pleural effusion [Unknown]
  - Disseminated intravascular coagulation [Unknown]
  - Mouth haemorrhage [Unknown]
  - Pyrexia [Unknown]
  - Pneumonia aspiration [Unknown]
  - Eye haemorrhage [Unknown]

NARRATIVE: CASE EVENT DATE: 20140626
